FAERS Safety Report 8452998-2 (Version None)
Quarter: 2012Q2

REPORT INFORMATION
  Report Type: 
  Country: None (occurrence: None)
  Receive Date: 20120620
  Receipt Date: 20120503
  Transmission Date: 20120825
  Serious: No
  Sender: FDA-Public Use
  Company Number: US-VERTEX PHARMACEUTICALS INC.-AE-2012-006456

PATIENT
  Sex: Male
  Weight: 83.536 kg

DRUGS (5)
  1. PEGASYS [Concomitant]
     Indication: HEPATITIS C
     Route: 058
     Dates: start: 20120408
  2. INCIVEK [Suspect]
     Indication: HEPATITIS C
     Route: 048
     Dates: start: 20120408, end: 20120503
  3. BACLOFEN [Concomitant]
     Indication: MUSCLE SPASMS
     Route: 048
     Dates: start: 20120426
  4. INCIVEK [Suspect]
     Route: 048
     Dates: start: 20120503
  5. RIBAVIRIN [Concomitant]
     Indication: HEPATITIS C
     Route: 048
     Dates: start: 20120408

REACTIONS (10)
  - DRUG DOSE OMISSION [None]
  - NASOPHARYNGITIS [None]
  - INAPPROPRIATE SCHEDULE OF DRUG ADMINISTRATION [None]
  - FEELING HOT [None]
  - BACK PAIN [None]
  - PRODUCTIVE COUGH [None]
  - HYPERHIDROSIS [None]
  - FATIGUE [None]
  - DIARRHOEA [None]
  - VOMITING [None]
